FAERS Safety Report 7556770-7 (Version None)
Quarter: 2011Q2

REPORT INFORMATION
  Report Type: 
  Country: None (occurrence: None)
  Receive Date: 20110620
  Receipt Date: 20110606
  Transmission Date: 20111010
  Serious: Yes (Hospitalization, Other)
  Sender: FDA-Public Use
  Company Number: CH-ELI_LILLY_AND_COMPANY-CH201106003468

PATIENT
  Age: 79 Year
  Sex: Female
  Weight: 51 kg

DRUGS (7)
  1. ZYPREXA [Suspect]
     Dosage: 2.5 MG, QD
     Route: 048
     Dates: start: 20101210, end: 20110104
  2. ASPIRIN [Concomitant]
     Dosage: 100 MG, UNK
     Dates: start: 20110106, end: 20110110
  3. ZYPREXA [Suspect]
     Dosage: 5 MG, QD
     Route: 048
     Dates: start: 20101210, end: 20110106
  4. METOPROLOL SUCCINATE [Concomitant]
     Dosage: UNK
     Dates: start: 20110107
  5. ZYPREXA [Suspect]
     Dosage: 2.5 MG, UNK
     Dates: start: 20110214
  6. FLOX-EX [Concomitant]
     Dosage: 50 MG, QD
     Route: 048
     Dates: start: 20101221, end: 20101228
  7. FLOX-EX [Concomitant]
     Dosage: 100 MG, QD
     Route: 048
     Dates: start: 20101229, end: 20110106

REACTIONS (4)
  - TRANSIENT ISCHAEMIC ATTACK [None]
  - ELECTROCARDIOGRAM QT PROLONGED [None]
  - ATRIAL FIBRILLATION [None]
  - DRUG INTERACTION [None]
